FAERS Safety Report 10102886 (Version 1)
Quarter: 2014Q2

REPORT INFORMATION
  Report Type: Spontaneous
  Country: US (occurrence: US)
  Receive Date: 20140424
  Receipt Date: 20140424
  Transmission Date: 20141212
  Serious: No
  Sender: FDA-Public Use
  Company Number: US-BRISTOL-MYERS SQUIBB COMPANY-19971688

PATIENT
  Age: 81 Year
  Sex: Female
  Weight: 55.33 kg

DRUGS (5)
  1. ELIQUIS [Suspect]
     Dates: start: 201308
  2. HYDROXYUREA [Concomitant]
  3. ANAGRELIDE HCL [Concomitant]
  4. LIPITOR [Concomitant]
  5. CARVEDILOL [Concomitant]

REACTIONS (2)
  - Abdominal distension [Unknown]
  - Flatulence [Unknown]
